FAERS Safety Report 7007477-6 (Version None)
Quarter: 2010Q3

REPORT INFORMATION
  Report Type: 
  Country: None (occurrence: None)
  Receive Date: 20100920
  Receipt Date: 20100914
  Transmission Date: 20110219
  Serious: Yes (Other)
  Sender: FDA-Public Use
  Company Number: DSA_43818_2010

PATIENT
  Sex: Female

DRUGS (4)
  1. XENAZINE [Suspect]
     Indication: CHOREA
     Dosage: (12.5 MG, ONE TABLET EVERY MORNING; TWO TABLETS EVERY NIGHT ORAL)
     Route: 048
  2. CELEXA [Concomitant]
  3. TOPAMAX [Concomitant]
  4. ACETAMINOPHEN [Concomitant]

REACTIONS (1)
  - DEPRESSION [None]
